FAERS Safety Report 21570740 (Version 1)
Quarter: 2022Q4

REPORT INFORMATION
  Report Type: Spontaneous
  Country: US (occurrence: US)
  Receive Date: 20221109
  Receipt Date: 20221109
  Transmission Date: 20230113
  Serious: No
  Sender: FDA-Public Use
  Company Number: US-BRISTOL-MYERS SQUIBB COMPANY-2022-135068

PATIENT
  Sex: Female

DRUGS (1)
  1. ELIQUIS [Suspect]
     Active Substance: APIXABAN
     Indication: Product used for unknown indication
     Dosage: WAS BREAKING TABLET AND TAKING 2.5MG TWICE DAILY

REACTIONS (2)
  - Treatment noncompliance [Unknown]
  - Illness [Unknown]

NARRATIVE: CASE EVENT DATE: 20220101
